FAERS Safety Report 12065695 (Version 1)
Quarter: 2016Q1

REPORT INFORMATION
  Report Type: Spontaneous
  Country: US (occurrence: None)
  Receive Date: 20160210
  Receipt Date: 20160210
  Transmission Date: 20160526
  Serious: Yes (Life-Threatening, Hospitalization, Disabling)
  Sender: FDA-Public Use
  Company Number: None

PATIENT
  Age: 60 Year
  Sex: Male
  Weight: 105.69 kg

DRUGS (15)
  1. RANITIDINE [Concomitant]
     Active Substance: RANITIDINE\RANITIDINE HYDROCHLORIDE
  2. ACYCLOVIR. [Concomitant]
     Active Substance: ACYCLOVIR
  3. HYDROMORPHONE [Concomitant]
     Active Substance: HYDROMORPHONE
  4. STOOL SOFTENER [Concomitant]
     Active Substance: DOCUSATE CALCIUM
  5. FERROUS SULFATE [Concomitant]
     Active Substance: FERROUS SULFATE\FERROUS SULFATE, DRIED
  6. IMBRUVICA [Suspect]
     Active Substance: IBRUTINIB
     Indication: CHRONIC LYMPHOCYTIC LEUKAEMIA
     Route: 048
     Dates: start: 20140712, end: 20140812
  7. SERTRALINE [Concomitant]
     Active Substance: SERTRALINE HYDROCHLORIDE
  8. MAGNESIUM [Concomitant]
     Active Substance: MAGNESIUM
  9. LEVOTHYROXINE. [Concomitant]
     Active Substance: LEVOTHYROXINE
  10. ATENOLOL. [Concomitant]
     Active Substance: ATENOLOL
  11. ALLOPURINOL. [Concomitant]
     Active Substance: ALLOPURINOL
  12. CALCIUM [Concomitant]
     Active Substance: CALCIUM
  13. COMPLETE MEN MULTIVITAMIN [Concomitant]
  14. MORPHINE SULF [Concomitant]
     Active Substance: MORPHINE SULFATE
  15. VITAMIN D [Concomitant]
     Active Substance: CHOLECALCIFEROL

REACTIONS (9)
  - Fall [None]
  - Subdural haematoma [None]
  - Impaired healing [None]
  - Dizziness [None]
  - Skin ulcer [None]
  - Gingival recession [None]
  - Contusion [None]
  - Tooth disorder [None]
  - Balance disorder [None]

NARRATIVE: CASE EVENT DATE: 20140712
